FAERS Safety Report 7239216-8 (Version None)
Quarter: 2011Q1

REPORT INFORMATION
  Report Type: 
  Country: None (occurrence: None)
  Receive Date: 20110121
  Receipt Date: 20110113
  Transmission Date: 20110831
  Serious: Yes (Hospitalization)
  Sender: FDA-Public Use
  Company Number: US-GENENTECH-312358

PATIENT
  Age: 86 Year
  Sex: Female

DRUGS (3)
  1. FLUDARABINE [Suspect]
     Indication: CHRONIC LYMPHOCYTIC LEUKAEMIA
     Dosage: 40 MG, UNK
     Route: 042
     Dates: start: 20100902
  2. CYCLOPHOSPHAMIDE [Suspect]
     Indication: CHRONIC LYMPHOCYTIC LEUKAEMIA
     Dosage: 350 MG, UNK
     Route: 042
     Dates: start: 20100930
  3. RITUXAN [Suspect]
     Indication: CHRONIC LYMPHOCYTIC LEUKAEMIA
     Dosage: 600 MG, UNK
     Route: 042
     Dates: start: 20100927

REACTIONS (10)
  - ABDOMINAL PAIN UPPER [None]
  - FUNGAL INFECTION [None]
  - VIRAL INFECTION [None]
  - FAILURE TO THRIVE [None]
  - PANCYTOPENIA [None]
  - MUCOSAL INFLAMMATION [None]
  - HYPOPHAGIA [None]
  - DYSPHAGIA [None]
  - DECREASED APPETITE [None]
  - FATIGUE [None]
